FAERS Safety Report 6274291-9 (Version None)
Quarter: 2009Q3

REPORT INFORMATION
  Report Type: 
  Country: None (occurrence: None)
  Receive Date: 20090716
  Receipt Date: 20090702
  Transmission Date: 20100115
  Serious: Yes (Other)
  Sender: FDA-Public Use
  Company Number: 2009001997

PATIENT
  Age: 64 Year
  Sex: Male

DRUGS (1)
  1. TARCEVA [Suspect]
     Indication: NON-SMALL CELL LUNG CANCER
     Dosage: 150 MG, QD, ORAL
     Route: 048
     Dates: start: 20090601

REACTIONS (4)
  - DECREASED APPETITE [None]
  - LETHARGY [None]
  - PULMONARY MYCOSIS [None]
  - RASH [None]
